FAERS Safety Report 10359775 (Version 1)
Quarter: 2014Q3

REPORT INFORMATION
  Report Type: Spontaneous
  Country: US (occurrence: US)
  Receive Date: 20140804
  Receipt Date: 20140804
  Transmission Date: 20150326
  Serious: Yes (Death, Other)
  Sender: FDA-Public Use
  Company Number: US-JNJFOC-20140720187

PATIENT
  Age: 48 Year
  Sex: Male

DRUGS (2)
  1. COLCHICINE. [Suspect]
     Active Substance: COLCHICINE
     Indication: PRODUCT USED FOR UNKNOWN INDICATION
     Route: 048
  2. IBUPROFEN. [Suspect]
     Active Substance: IBUPROFEN
     Indication: COMPLETED SUICIDE
     Route: 065

REACTIONS (9)
  - Toxicity to various agents [Unknown]
  - Cardiac arrest [Fatal]
  - Multi-organ failure [Not Recovered/Not Resolved]
  - Cardiogenic shock [Not Recovered/Not Resolved]
  - Vomiting [Unknown]
  - Acute myocardial infarction [Not Recovered/Not Resolved]
  - Renal failure acute [Not Recovered/Not Resolved]
  - Abdominal pain [Unknown]
  - Intentional overdose [Unknown]
